FAERS Safety Report 9681682 (Version 1)
Quarter: 2013Q4

REPORT INFORMATION
  Report Type: Spontaneous
  Country: GB (occurrence: GB)
  Receive Date: 20131111
  Receipt Date: 20131111
  Transmission Date: 20140711
  Serious: Yes (Hospitalization)
  Sender: FDA-Public Use
  Company Number: GB-TEVA-442445ISR

PATIENT
  Age: 33 Year
  Sex: Male

DRUGS (2)
  1. CLARITHROMYCIN [Suspect]
     Indication: LOWER RESPIRATORY TRACT INFECTION
     Dosage: 1000 MILLIGRAM DAILY;
     Route: 048
     Dates: start: 20131016, end: 20131017
  2. AMOXICILLIN [Concomitant]
     Dosage: 1500 MILLIGRAM DAILY;

REACTIONS (4)
  - Slow response to stimuli [Unknown]
  - Decreased eye contact [Unknown]
  - Abnormal behaviour [Unknown]
  - Communication disorder [Unknown]
